FAERS Safety Report 8583830 (Version 6)
Quarter: 2013Q4

REPORT INFORMATION
  Report Type: Spontaneous
  Country: FR (occurrence: FR)
  Receive Date: 20120529
  Receipt Date: 20131105
  Transmission Date: 20140711
  Serious: Yes (Death, Hospitalization)
  Sender: FDA-Public Use
  Company Number: FR-ROCHE-1071513

PATIENT
  Sex: Male

DRUGS (12)
  1. MABTHERA [Suspect]
     Indication: NON-HODGKIN^S LYMPHOMA
     Route: 042
     Dates: start: 20080425, end: 20080516
  2. MABTHERA [Suspect]
     Route: 042
     Dates: start: 20100506, end: 20100901
  3. MABTHERA [Suspect]
     Dosage: 7040 MAINTENANCE
     Route: 042
     Dates: start: 20101116, end: 201204
  4. ENDOXAN [Suspect]
     Indication: NON-HODGKIN^S LYMPHOMA
     Route: 048
     Dates: start: 20100506, end: 20100905
  5. ENDOXAN [Suspect]
     Route: 048
     Dates: start: 20101116, end: 201204
  6. VINCRISTINE SULFATE [Suspect]
     Indication: NON-HODGKIN^S LYMPHOMA
     Route: 042
     Dates: start: 20100506, end: 20100901
  7. DOXORUBICINE [Suspect]
     Indication: NON-HODGKIN^S LYMPHOMA
     Route: 042
     Dates: start: 20100506, end: 20100901
  8. SOLUPRED (FRANCE) [Suspect]
     Indication: NON-HODGKIN^S LYMPHOMA
     Route: 048
     Dates: start: 20100507, end: 20100905
  9. METHYLPREDNISOLONE [Suspect]
     Indication: PREMEDICATION
     Route: 042
     Dates: start: 20080425, end: 20080516
  10. METHYLPREDNISOLONE [Suspect]
     Route: 042
     Dates: start: 20100506, end: 20100901
  11. METHYLPREDNISOLONE [Suspect]
     Route: 042
     Dates: start: 20101116, end: 201204
  12. CLONAZEPAM [Concomitant]
     Indication: NEURALGIA
     Route: 065

REACTIONS (1)
  - Malignant melanoma [Fatal]
